FAERS Safety Report 6675023-2 (Version None)
Quarter: 2010Q2

REPORT INFORMATION
  Report Type: 
  Country: None (occurrence: None)
  Receive Date: 20100409
  Receipt Date: 20100407
  Transmission Date: 20101027
  Serious: Yes (Other)
  Sender: FDA-Public Use
  Company Number: US-MERCK-1002USA02355

PATIENT
  Age: 14 Year
  Sex: Female
  Weight: 56 kg

DRUGS (4)
  1. SINGULAIR [Suspect]
     Route: 048
     Dates: start: 20070101
  2. FLONASE [Concomitant]
     Route: 065
  3. ADVAIR DISKUS 100/50 [Concomitant]
     Route: 065
  4. CORTICOSTEROIDS (UNSPECIFIED) [Concomitant]
     Route: 048

REACTIONS (1)
  - SUICIDAL IDEATION [None]
